FAERS Safety Report 15384396 (Version 1)
Quarter: 2018Q3

REPORT INFORMATION
  Report Type: Spontaneous
  Country: US (occurrence: US)
  Receive Date: 20180907
  Receipt Date: 20180907
  Transmission Date: 20181010
  Serious: Yes (Other)
  Sender: FDA-Public Use
  Company Number: None

PATIENT
  Age: 53 Year
  Sex: Female
  Weight: 63 kg

DRUGS (7)
  1. MELOXICAM. [Concomitant]
     Active Substance: MELOXICAM
  2. BACLOFEN. [Suspect]
     Active Substance: BACLOFEN
     Dosage: 10?20 MG
     Route: 048
  3. CHONDROITIN/GLUCOSAMINE [Concomitant]
     Active Substance: CHONDROITIN SULFATE (BOVINE)\GLUCOSAMINE SULFATE
  4. TRAMADOL. [Suspect]
     Active Substance: TRAMADOL
     Indication: SCIATICA
     Dosage: ?          QUANTITY:21 TABLET(S);?
     Route: 048
  5. MULTIVITAMIN/MINERALS [Concomitant]
  6. TUMERIC [Concomitant]
     Active Substance: HERBALS\TURMERIC
  7. NORTRIPTYLINE [Suspect]
     Active Substance: NORTRIPTYLINE
     Indication: NEURALGIA
     Dosage: ?          QUANTITY:25 MG MILLIGRAM(S);?

REACTIONS (4)
  - Sleep apnoea syndrome [None]
  - Drug prescribing error [None]
  - Respiratory depression [None]
  - Dizziness [None]

NARRATIVE: CASE EVENT DATE: 20180906
